FAERS Safety Report 22738425 (Version 8)
Quarter: 2023Q4

REPORT INFORMATION
  Report Type: Spontaneous
  Country: US (occurrence: US)
  Receive Date: 20230721
  Receipt Date: 20231128
  Transmission Date: 20240110
  Serious: Yes (Other)
  Sender: FDA-Public Use
  Company Number: US-PFIZER INC-PV202300123517

PATIENT
  Age: 79 Year
  Sex: Female

DRUGS (1)
  1. IBRANCE [Suspect]
     Active Substance: PALBOCICLIB
     Indication: Metastatic neoplasm
     Dosage: 125 MG, CYCLIC (1X/DAY, TAKE FOR 7 DAYS THEN OFF 7 DAYS)
     Dates: start: 20230606

REACTIONS (14)
  - Choking [Unknown]
  - Off label use [Unknown]
  - Dysphonia [Recovered/Resolved]
  - Anxiety [Recovered/Resolved]
  - Depressed mood [Not Recovered/Not Resolved]
  - Diarrhoea [Unknown]
  - Arthritis [Unknown]
  - Insomnia [Unknown]
  - Pain [Unknown]
  - Alopecia [Unknown]
  - Depression [Unknown]
  - Gait disturbance [Unknown]
  - Haemorrhage [Unknown]
  - Dizziness [Unknown]

NARRATIVE: CASE EVENT DATE: 20230101
